FAERS Safety Report 24332281 (Version 1)
Quarter: 2024Q3

REPORT INFORMATION
  Report Type: Spontaneous
  Country: CN (occurrence: CN)
  Receive Date: 20240918
  Receipt Date: 20240918
  Transmission Date: 20241017
  Serious: Yes (Other)
  Sender: STRIDES
  Company Number: CN-STRIDES ARCOLAB LIMITED-2024SP011785

PATIENT
  Age: 22 Year
  Sex: Male

DRUGS (3)
  1. ETOPOSIDE [Suspect]
     Active Substance: ETOPOSIDE
     Indication: Testicular embryonal carcinoma
     Dosage: 100 MILLIGRAM, INFUSION, CYCLICAL (ON DAYS 1-3)
     Route: 042
     Dates: start: 20220506
  2. BLEOMYCIN [Suspect]
     Active Substance: BLEOMYCIN SULFATE
     Indication: Testicular embryonal carcinoma
     Dosage: 13000 INTERNATIONAL UNIT, CYCLICAL (ON DAYS 1-3)
     Route: 042
     Dates: start: 20220506
  3. CISPLATIN [Suspect]
     Active Substance: CISPLATIN
     Indication: Testicular embryonal carcinoma
     Dosage: 100 MILLIGRAM, CYCLICAL (ON DAY 1 AT 21-DAY CYCLE INTERVALS)
     Route: 042
     Dates: start: 20220506

REACTIONS (3)
  - Transaminases increased [Recovered/Resolved]
  - Decreased appetite [Recovered/Resolved]
  - Myelosuppression [Recovered/Resolved]
